FAERS Safety Report 7903657-3 (Version None)
Quarter: 2011Q4

REPORT INFORMATION
  Report Type: 
  Country: None (occurrence: None)
  Receive Date: 20111109
  Receipt Date: 20111102
  Transmission Date: 20120403
  Serious: Yes (Hospitalization)
  Sender: FDA-Public Use
  Company Number: US-UCBSA-042779

PATIENT
  Age: 15 Year
  Sex: Male
  Weight: 46.1 kg

DRUGS (2)
  1. AMOXICILLIN [Concomitant]
     Route: 048
     Dates: start: 20110926, end: 20111002
  2. CERTOLIZUMAB PEGOL [Suspect]
     Indication: CROHN'S DISEASE
     Route: 058
     Dates: start: 20110420

REACTIONS (1)
  - VIRAL INFECTION [None]
